FAERS Safety Report 13831580 (Version 2)
Quarter: 2018Q2

REPORT INFORMATION
  Report Type: Report from Study
  Country: US (occurrence: US)
  Receive Date: 20170803
  Receipt Date: 20180612
  Transmission Date: 20180711
  Serious: Yes (Life-Threatening, Hospitalization, Other)
  Sender: FDA-Public Use
  Company Number: US-EISAI MEDICAL RESEARCH-EC-2015-008101

PATIENT
  Age: 79 Year
  Sex: Male
  Weight: 106.7 kg

DRUGS (65)
  1. NEURONTIN [Concomitant]
     Active Substance: GABAPENTIN
     Route: 048
     Dates: start: 20130110
  2. VITAMIN B12 [Concomitant]
     Active Substance: CYANOCOBALAMIN
  3. MOBIC [Concomitant]
     Active Substance: MELOXICAM
  4. HYDROCHLOROTHIAZIDE. [Concomitant]
     Active Substance: HYDROCHLOROTHIAZIDE
  5. LORTISONE CREAM [Concomitant]
  6. ZINC OXIDE BARRIER OITMENT [Concomitant]
  7. MIRALAX [Concomitant]
     Active Substance: POLYETHYLENE GLYCOL 3350
  8. LIQUID NITROGEN [Concomitant]
     Active Substance: NITROGEN
  9. PREVACID [Concomitant]
     Active Substance: LANSOPRAZOLE
  10. LINZESS [Concomitant]
     Active Substance: LINACLOTIDE
  11. VALIUM [Concomitant]
     Active Substance: DIAZEPAM
  12. ASPIRIN. [Concomitant]
     Active Substance: ASPIRIN
     Route: 048
     Dates: start: 20131008
  13. TRAZODONE [Concomitant]
     Active Substance: TRAZODONE HYDROCHLORIDE
     Route: 048
     Dates: start: 20120808
  14. IBUPROFEN. [Concomitant]
     Active Substance: IBUPROFEN
     Route: 048
     Dates: start: 201410
  15. VENTOLIN HFA [Concomitant]
     Active Substance: ALBUTEROL SULFATE
     Route: 048
     Dates: start: 20141007
  16. ALDACTONE [Concomitant]
     Active Substance: SPIRONOLACTONE
     Route: 048
     Dates: start: 20130703
  17. DOXYCYCLINE. [Concomitant]
     Active Substance: DOXYCYCLINE
     Route: 048
     Dates: start: 20130703
  18. GABAPENTIN. [Concomitant]
     Active Substance: GABAPENTIN
  19. ACETAMINOPHEN. [Concomitant]
     Active Substance: ACETAMINOPHEN
  20. DOXYCYCLINE HYCLATE. [Concomitant]
     Active Substance: DOXYCYCLINE HYCLATE
  21. LABETALOL [Concomitant]
     Active Substance: LABETALOL\LABETALOL HYDROCHLORIDE
  22. DEXILANT [Concomitant]
     Active Substance: DEXLANSOPRAZOLE
  23. PLACEBO [Suspect]
     Active Substance: UNSPECIFIED INGREDIENT
     Route: 048
     Dates: start: 20150906, end: 20161113
  24. GLUCOPHAGE [Concomitant]
     Active Substance: METFORMIN HYDROCHLORIDE
     Route: 048
     Dates: start: 20120808
  25. METAPROLOL [Concomitant]
     Active Substance: METOPROLOL
     Route: 048
     Dates: start: 20120808
  26. TRETINOIN. [Concomitant]
     Active Substance: TRETINOIN
  27. CLOPIDOGREL [Concomitant]
     Active Substance: CLOPIDOGREL BISULFATE
  28. FLAGYL [Concomitant]
     Active Substance: METRONIDAZOLE\METRONIDAZOLE HYDROCHLORIDE
  29. AMITIZA [Concomitant]
     Active Substance: LUBIPROSTONE
  30. ISOSORBIDE MONONITRATE. [Concomitant]
     Active Substance: ISOSORBIDE MONONITRATE
     Route: 048
     Dates: start: 20120808
  31. LOTRISONE [Concomitant]
     Active Substance: BETAMETHASONE DIPROPIONATE\CLOTRIMAZOLE
  32. INDOMETHACIN. [Concomitant]
     Active Substance: INDOMETHACIN
  33. CIPRO [Concomitant]
     Active Substance: CIPROFLOXACIN HYDROCHLORIDE
  34. NITROPASTE [Concomitant]
     Active Substance: NITROGLYCERIN
  35. TRAMADOL. [Concomitant]
     Active Substance: TRAMADOL
  36. AMITRIPTYLINE HCL [Concomitant]
     Active Substance: AMITRIPTYLINE
  37. PLACEBO [Suspect]
     Active Substance: UNSPECIFIED INGREDIENT
     Indication: WEIGHT CONTROL
     Route: 048
     Dates: start: 20140814, end: 20150624
  38. PRAVASTATIN. [Concomitant]
     Active Substance: PRAVASTATIN
     Route: 048
     Dates: start: 20150316
  39. ONEXTON [Concomitant]
     Active Substance: BENZOYL PEROXIDE\CLINDAMYCIN PHOSPHATE
  40. ANDROGEL [Concomitant]
     Active Substance: TESTOSTERONE
  41. VICODIN [Concomitant]
     Active Substance: ACETAMINOPHEN\HYDROCODONE BITARTRATE
  42. SENNA [Concomitant]
     Active Substance: SENNA LEAF\SENNOSIDES\SENNOSIDES A AND B
  43. PLACEBO [Suspect]
     Active Substance: UNSPECIFIED INGREDIENT
     Route: 048
     Dates: start: 20150716, end: 20150828
  44. PLACEBO [Suspect]
     Active Substance: UNSPECIFIED INGREDIENT
     Route: 048
     Dates: start: 20161117, end: 20161130
  45. PRAVASTATIN. [Concomitant]
     Active Substance: PRAVASTATIN
  46. FLECTOR [Concomitant]
     Active Substance: DICLOFENAC EPOLAMINE
     Indication: WEIGHT CONTROL
  47. PREVACID [Concomitant]
     Active Substance: LANSOPRAZOLE
  48. NYSTATIN. [Concomitant]
     Active Substance: NYSTATIN
  49. AQUAFOR CREAM [Concomitant]
  50. SPIRONOLACTONE. [Concomitant]
     Active Substance: SPIRONOLACTONE
  51. OMEPRAZOLE. [Concomitant]
     Active Substance: OMEPRAZOLE
     Route: 048
     Dates: start: 20120808
  52. COENZYME Q10 [Concomitant]
     Active Substance: UBIDECARENONE
  53. METOPROLOL SUCCINATE ER [Concomitant]
     Active Substance: METOPROLOL SUCCINATE
  54. ISOSORBIDE MONONITRATE. [Concomitant]
     Active Substance: ISOSORBIDE MONONITRATE
  55. XIFAXAN [Concomitant]
     Active Substance: RIFAXIMIN
  56. ISOSORBIDE MONONITRATE. [Concomitant]
     Active Substance: ISOSORBIDE MONONITRATE
  57. FENOFIBRATE. [Concomitant]
     Active Substance: FENOFIBRATE
     Route: 048
     Dates: start: 20141029
  58. NITROSTAT [Concomitant]
     Active Substance: NITROGLYCERIN
     Route: 060
     Dates: start: 20130110
  59. BENZOYL PEROXIDE. [Concomitant]
     Active Substance: BENZOYL PEROXIDE
  60. CLOBETASOL [Concomitant]
     Active Substance: CLOBETASOL
  61. SPIRONOLACTONE. [Concomitant]
     Active Substance: SPIRONOLACTONE
  62. LIPITOR [Concomitant]
     Active Substance: ATORVASTATIN CALCIUM
  63. RANEXA [Concomitant]
     Active Substance: RANOLAZINE
  64. COLACE [Concomitant]
     Active Substance: DOCUSATE SODIUM
  65. PERCOCET [Concomitant]
     Active Substance: ACETAMINOPHEN\OXYCODONE HYDROCHLORIDE

REACTIONS (6)
  - Diverticulitis [Recovered/Resolved]
  - Angina unstable [Recovered/Resolved]
  - Acute coronary syndrome [Recovered/Resolved]
  - Mitral valve incompetence [Not Recovered/Not Resolved]
  - Dyspnoea [Recovered/Resolved]
  - Musculoskeletal pain [Recovered/Resolved]

NARRATIVE: CASE EVENT DATE: 20150611
